FAERS Safety Report 9378609 (Version 3)
Quarter: 2013Q4

REPORT INFORMATION
  Report Type: Spontaneous
  Country: IL (occurrence: IL)
  Receive Date: 20130702
  Receipt Date: 20131001
  Transmission Date: 20140711
  Serious: Yes (Other)
  Sender: FDA-Public Use
  Company Number: IL-009507513-1306ISR013392

PATIENT
  Age: 75 Year
  Sex: Female

DRUGS (4)
  1. BRIDION [Suspect]
     Dosage: 200 MG, ONCE
  2. ESMERON [Suspect]
  3. NEOSTIGMIN [Concomitant]
  4. ATROPINE [Concomitant]

REACTIONS (2)
  - Cardiac arrest [Unknown]
  - Bradycardia [Unknown]
